FAERS Safety Report 6774062-0 (Version None)
Quarter: 2010Q2

REPORT INFORMATION
  Report Type: 
  Country: None (occurrence: None)
  Receive Date: 20100617
  Receipt Date: 20090605
  Transmission Date: 20101027
  Serious: Yes (Other)
  Sender: FDA-Public Use
  Company Number: NL-JNJFOC-20090604193

PATIENT
  Sex: Male
  Weight: 28 kg

DRUGS (1)
  1. KETOCONAZOLE [Suspect]
     Indication: TESTOTOXICOSIS
     Route: 065

REACTIONS (6)
  - BLOOD CORTICOTROPHIN INCREASED [None]
  - BRAIN NEOPLASM [None]
  - DIABETES INSIPIDUS [None]
  - HYPOPITUITARISM [None]
  - OFF LABEL USE [None]
  - POLYURIA [None]
